FAERS Safety Report 20611584 (Version 1)
Quarter: 2022Q1

REPORT INFORMATION
  Report Type: Spontaneous
  Country: US (occurrence: US)
  Receive Date: 20220318
  Receipt Date: 20220318
  Transmission Date: 20220423
  Serious: No
  Sender: FDA-Public Use
  Company Number: US-009507513-2202USA006458

PATIENT
  Sex: Female

DRUGS (3)
  1. PROVENTIL [Suspect]
     Active Substance: ALBUTEROL
     Dosage: RESCUE/AS NEEDED
  2. PROVENTIL [Suspect]
     Active Substance: ALBUTEROL
     Dosage: RESCUE/AS NEEDED
  3. PROVENTIL [Suspect]
     Active Substance: ALBUTEROL
     Dosage: RESCUE/AS NEEDED
     Dates: start: 20220107

REACTIONS (9)
  - Device malfunction [Unknown]
  - Poor quality device used [Unknown]
  - Product delivery mechanism issue [Unknown]
  - No adverse event [Unknown]
  - Product dose omission issue [Unknown]
  - Circumstance or information capable of leading to medication error [Unknown]
  - Device malfunction [Unknown]
  - Poor quality device used [Unknown]
  - Product delivery mechanism issue [Unknown]

NARRATIVE: CASE EVENT DATE: 20220101
